FAERS Safety Report 13866764 (Version 1)
Quarter: 2017Q3

REPORT INFORMATION
  Report Type: Spontaneous
  Country: FR (occurrence: FR)
  Receive Date: 20170814
  Receipt Date: 20170814
  Transmission Date: 20171127
  Serious: Yes (Death, Hospitalization, Other)
  Sender: FDA-Public Use
  Company Number: FR-BRISTOL-MYERS SQUIBB COMPANY-BMS-2017-069215

PATIENT
  Age: 79 Year
  Sex: Male

DRUGS (3)
  1. COUMADINE [Suspect]
     Active Substance: WARFARIN SODIUM
     Indication: ATRIAL FIBRILLATION
     Dosage: 2 MG, TID
     Route: 048
  2. PARACETAMOL [Concomitant]
     Active Substance: ACETAMINOPHEN
     Indication: PRODUCT USED FOR UNKNOWN INDICATION
     Dosage: 1 G, TID
     Route: 048
  3. AMIODARONE [Concomitant]
     Active Substance: AMIODARONE
     Indication: PRODUCT USED FOR UNKNOWN INDICATION
     Dosage: 200 MG, QD
     Route: 048

REACTIONS (10)
  - Renal failure [Unknown]
  - Skin ulcer [Unknown]
  - Dermatitis [Unknown]
  - Cardiac failure [Unknown]
  - Death [Fatal]
  - Prostatitis [Unknown]
  - Fall [Unknown]
  - Haemorrhage intracranial [Unknown]
  - Subdural haematoma [Unknown]
  - Overdose [Unknown]

NARRATIVE: CASE EVENT DATE: 20150519
